FAERS Safety Report 7270072-8 (Version None)
Quarter: 2011Q1

REPORT INFORMATION
  Report Type: 
  Country: None (occurrence: None)
  Receive Date: 20110202
  Receipt Date: 20110121
  Transmission Date: 20110831
  Serious: Yes (Hospitalization, Other)
  Sender: FDA-Public Use
  Company Number: US-ACTELION-A-NJ2010-43137

PATIENT

DRUGS (3)
  1. LASIX [Concomitant]
  2. SPIRONOLACTONE [Concomitant]
  3. VELETRI [Suspect]
     Indication: PULMONARY ARTERIAL HYPERTENSION
     Dosage: 30 NG/KG, PER MIN
     Route: 041
     Dates: start: 20100712

REACTIONS (7)
  - PAIN IN EXTREMITY [None]
  - PAIN IN JAW [None]
  - FALL [None]
  - DIARRHOEA [None]
  - PARACENTESIS [None]
  - PAIN [None]
  - ASCITES [None]
